FAERS Safety Report 12957001 (Version 1)
Quarter: 2016Q4

REPORT INFORMATION
  Report Type: Report from Study
  Country: AU (occurrence: AU)
  Receive Date: 20161119
  Receipt Date: 20161119
  Transmission Date: 20170207
  Serious: Yes (Death)
  Sender: FDA-Public Use
  Company Number: AU-ASTRAZENECA-2013SE80549

PATIENT
  Age: 23099 Day
  Sex: Male

DRUGS (1)
  1. ZOLADEX [Suspect]
     Active Substance: GOSERELIN ACETATE
     Indication: PROSTATE CANCER
     Dosage: 3 MONTHLY
     Route: 058
     Dates: start: 20130501

REACTIONS (2)
  - Hot flush [Unknown]
  - Death [Fatal]

NARRATIVE: CASE EVENT DATE: 20130501
